FAERS Safety Report 7278287-X (Version None)
Quarter: 2011Q1

REPORT INFORMATION
  Report Type: 
  Country: None (occurrence: None)
  Receive Date: 20110207
  Receipt Date: 20110124
  Transmission Date: 20110831
  Serious: Yes (Other)
  Sender: FDA-Public Use
  Company Number: US-KINGPHARMUSA00001-K201100110

PATIENT
  Age: 34 Year
  Sex: Female
  Weight: 81.179 kg

DRUGS (5)
  1. TAPAZOLE [Suspect]
     Indication: HYPERTHYROIDISM
     Dosage: 10 MG, QD
     Route: 048
     Dates: start: 20110105
  2. TAPAZOLE [Suspect]
     Dosage: 5 MG, QD
     Route: 048
     Dates: start: 20110101
  3. YAZ [Concomitant]
     Indication: CONTRACEPTION
     Dosage: UNK
  4. HYDROCODONE BITARTRATE [Concomitant]
     Indication: NECK PAIN
     Dosage: UNK
  5. TAPAZOLE [Suspect]
     Dosage: UNK
     Route: 048
     Dates: start: 20020101, end: 20020101

REACTIONS (4)
  - HALLUCINATION, AUDITORY [None]
  - ABNORMAL DREAMS [None]
  - HALLUCINATION [None]
  - ADVERSE EVENT [None]
